FAERS Safety Report 5786484-5 (Version None)
Quarter: 2008Q2

REPORT INFORMATION
  Report Type: 
  Country: None (occurrence: None)
  Receive Date: 20080624
  Receipt Date: 20080607
  Transmission Date: 20081010
  Serious: Yes (Death)
  Sender: FDA-Public Use
  Company Number: DK-BOEHRINGER INGELHEIM GMBH, GERMANY-2005-SW-00386DB

PATIENT
  Sex: Female
  Weight: 85 kg

DRUGS (5)
  1. PLACEBO [Suspect]
     Indication: CHRONIC OBSTRUCTIVE PULMONARY DISEASE
     Route: 055
  2. MAGNYL [Suspect]
     Indication: THROMBOSIS PROPHYLAXIS
     Route: 048
  3. PREDNISONE [Suspect]
     Indication: CHRONIC OBSTRUCTIVE PULMONARY DISEASE
     Route: 048
  4. COZAAR [Concomitant]
     Indication: HYPERTENSION
     Route: 048
  5. SERETIDE [Concomitant]
     Indication: CHRONIC OBSTRUCTIVE PULMONARY DISEASE
     Dosage: 100 MCG  SALMETEROL/500 MCG FLUTICASONE
     Route: 055

REACTIONS (1)
  - BLEEDING VARICOSE VEIN [None]
